FAERS Safety Report 4403394-6 (Version None)
Quarter: 2004Q3

REPORT INFORMATION
  Report Type: 
  Country: None (occurrence: None)
  Receive Date: 20040715
  Receipt Date: 20040629
  Transmission Date: 20050211
  Serious: Yes (Other)
  Sender: FDA-Public Use
  Company Number: 2004044251

PATIENT
  Age: 52 Year
  Sex: Male
  Weight: 83.4619 kg

DRUGS (3)
  1. LIPITOR [Suspect]
     Indication: HYPERLIPIDAEMIA
     Dosage: 80 MG (1 IN 1 D), ORAL
     Route: 048
     Dates: start: 20030601, end: 20040201
  2. CLOPIDOGREL BISULFATE [Concomitant]
  3. BUPROPION HYDROCHLORIDE [Concomitant]

REACTIONS (21)
  - AMMONIA INCREASED [None]
  - AUTOIMMUNE HEPATITIS [None]
  - BACK PAIN [None]
  - BLOOD CHOLESTEROL INCREASED [None]
  - BLOOD GLUCOSE INCREASED [None]
  - BLOOD POTASSIUM INCREASED [None]
  - BLOOD PRESSURE INCREASED [None]
  - BLOOD TRIGLYCERIDES INCREASED [None]
  - CONSTIPATION [None]
  - COUGH [None]
  - DISTURBANCE IN ATTENTION [None]
  - FLATULENCE [None]
  - HIGH DENSITY LIPOPROTEIN DECREASED [None]
  - IRRITABILITY [None]
  - MUCOUS MEMBRANE DISORDER [None]
  - PERIPHERAL COLDNESS [None]
  - POLLAKIURIA [None]
  - PROSTATITIS [None]
  - PSYCHOMOTOR HYPERACTIVITY [None]
  - TREMOR [None]
  - URINARY TRACT INFECTION [None]
